FAERS Safety Report 7809783-1 (Version None)
Quarter: 2011Q4

REPORT INFORMATION
  Report Type: 
  Country: None (occurrence: None)
  Receive Date: 20111012
  Receipt Date: 20110929
  Transmission Date: 20120403
  Serious: Yes (Other)
  Sender: FDA-Public Use
  Company Number: PHHY2011SE86119

PATIENT
  Sex: Female

DRUGS (14)
  1. TRANDATE [Concomitant]
     Dosage: UNK UKN, UNK
     Route: 064
  2. TEGRETOL [Suspect]
     Dosage: 9 MG/KG/DAY (MATERNAL DOSE)
     Route: 064
  3. SUCCINYLCHOLINE CHLORIDE [Suspect]
     Dosage: 100 MG, UNK (MATERNAL DOSE)
     Route: 064
     Dates: start: 20110713
  4. NITRAZEPAM [Suspect]
     Dosage: 1 MG/KG/DAY (MATERNAL DOSE)
     Route: 064
  5. ALFENTANIL [Suspect]
     Dosage: 0.5 MG, UNK (MATERNAL DOSE)
     Route: 064
     Dates: start: 20110713
  6. PENTOTHAL [Suspect]
     Dosage: 500 MG, UNK (MATERNAL DOSE)
     Route: 064
     Dates: start: 20110713
  7. KALCIPOS-D MITE [Concomitant]
     Dosage: 500 MG/400 IE (MATERNAL DOSE)
     Route: 064
  8. FOLIC ACID [Concomitant]
     Dosage: 5 MG, UNK (MATERNAL DOSE)
     Route: 064
  9. ZOLPIDEM TARTRATE [Suspect]
     Dosage: 10 MG/KG/DAY (MATERNAL DOSE)
     Route: 064
  10. VENLAFAXINE [Suspect]
     Dosage: 75 MG/DAY (MATERNAL DOSE)
     Route: 064
  11. LYRICA [Suspect]
     Dosage: 350 MG/DAY (MATERNAL DOSE)
     Route: 064
  12. PROPAVAN [Suspect]
     Dosage: 1 MG/KG/DAY (MATERNAL DOSE)
     Route: 064
  13. BACLOFEN [Suspect]
     Dosage: 10 MG/DAY (MATERNAL DOSE)
     Route: 064
  14. CILAXORAL [Concomitant]
     Dosage: UNK UKN, UNK
     Route: 064

REACTIONS (2)
  - RESPIRATORY DEPRESSION [None]
  - FATIGUE [None]
